FAERS Safety Report 19367504 (Version 2)
Quarter: 2021Q3

REPORT INFORMATION
  Report Type: Spontaneous
  Country: US (occurrence: US)
  Receive Date: 20210603
  Receipt Date: 20210714
  Transmission Date: 20211014
  Serious: Yes (Disabling, Other)
  Sender: FDA-Public Use
  Company Number: US-PFIZER INC-2021593119

PATIENT
  Age: 37 Year
  Sex: Male

DRUGS (1)
  1. XYNTHA [Suspect]
     Active Substance: ANTIHEMOPHILIC FACTOR, HUMAN RECOMBINANT RESIDUES 743-1636 DELETED

REACTIONS (4)
  - Hypothalamo-pituitary disorder [Unknown]
  - Visual impairment [Unknown]
  - Balance disorder [Unknown]
  - Impaired work ability [Unknown]
